FAERS Safety Report 23383196 (Version 1)
Quarter: 2024Q1

REPORT INFORMATION
  Report Type: Spontaneous
  Country: US (occurrence: US)
  Receive Date: 20240109
  Receipt Date: 20240109
  Transmission Date: 20240410
  Serious: No
  Sender: FDA-Public Use
  Company Number: US-BIOVITRUM-2024-US-000149

PATIENT
  Age: 15 Month
  Sex: Male
  Weight: 8.79 kg

DRUGS (9)
  1. SYNAGIS [Suspect]
     Active Substance: PALIVIZUMAB
     Indication: Low birth weight baby
     Dosage: 15MG/KG MONTHLY
     Route: 030
  2. SYNAGIS [Suspect]
     Active Substance: PALIVIZUMAB
     Indication: Bronchopulmonary dysplasia
  3. SYNAGIS [Suspect]
     Active Substance: PALIVIZUMAB
     Indication: Adrenal insufficiency
  4. SYNAGIS [Suspect]
     Active Substance: PALIVIZUMAB
     Indication: Heart disease congenital
  5. SYNAGIS [Suspect]
     Active Substance: PALIVIZUMAB
     Indication: Dysplasia
  6. SYNAGIS [Suspect]
     Active Substance: PALIVIZUMAB
     Indication: Premature baby
  7. SYNAGIS [Suspect]
     Active Substance: PALIVIZUMAB
     Indication: Congenital anomaly
  8. ALBUTEROL SULFATE [Concomitant]
     Active Substance: ALBUTEROL SULFATE
     Indication: Product used for unknown indication
  9. EPINEPHRINE [Concomitant]
     Active Substance: EPINEPHRINE
     Indication: Product used for unknown indication

REACTIONS (3)
  - Rhinorrhoea [Unknown]
  - Cough [Unknown]
  - Teething [Unknown]
